FAERS Safety Report 14459386 (Version 1)
Quarter: 2018Q1

REPORT INFORMATION
  Report Type: Spontaneous
  Country: FR (occurrence: FR)
  Receive Date: 20180130
  Receipt Date: 20180130
  Transmission Date: 20180509
  Serious: Yes (Other)
  Sender: FDA-Public Use
  Company Number: FR-MYLANLABS-2018M1008200

PATIENT
  Age: 39 Year
  Sex: Male
  Weight: 71 kg

DRUGS (2)
  1. CLOZAPINE. [Suspect]
     Active Substance: CLOZAPINE
     Indication: SCHIZOPHRENIA
     Dosage: UNK
     Route: 048
  2. DEPAKOTE [Suspect]
     Active Substance: DIVALPROEX SODIUM
     Indication: AFFECTIVE DISORDER
     Dosage: 1500 MG, QD
     Route: 048
     Dates: start: 20171212, end: 20171220

REACTIONS (5)
  - Pancreatitis [Recovering/Resolving]
  - Pyrexia [Recovered/Resolved]
  - Arthralgia [Unknown]
  - Abdominal pain [Recovering/Resolving]
  - Headache [Unknown]

NARRATIVE: CASE EVENT DATE: 20171214
